FAERS Safety Report 19096066 (Version 1)
Quarter: 2021Q2

REPORT INFORMATION
  Report Type: Spontaneous
  Country: GB (occurrence: GB)
  Receive Date: 20210406
  Receipt Date: 20210406
  Transmission Date: 20210717
  Serious: Yes (Life-Threatening, Other)
  Sender: FDA-Public Use
  Company Number: GB-BAYER-2021-113427

PATIENT
  Age: 36 Year
  Sex: Female

DRUGS (1)
  1. LEVONORGESTREL IUS [UNKNOWN] [Suspect]
     Active Substance: LEVONORGESTREL
     Dosage: UNK
     Route: 015

REACTIONS (6)
  - Ruptured ectopic pregnancy [Recovered/Resolved]
  - Shock [Recovered/Resolved]
  - Drug ineffective [None]
  - Splenic haemorrhage [Recovered/Resolved]
  - Haemoperitoneum [Recovered/Resolved]
  - Device dislocation [None]
